FAERS Safety Report 15981149 (Version 1)
Quarter: 2019Q1

REPORT INFORMATION
  Report Type: Spontaneous
  Country: US (occurrence: US)
  Receive Date: 20190218
  Receipt Date: 20190218
  Transmission Date: 20190418
  Serious: Yes (Life-Threatening, Disabling, Other)
  Sender: FDA-Public Use
  Company Number: None

PATIENT
  Age: 52 Year
  Sex: Female
  Weight: 67.5 kg

DRUGS (8)
  1. ZOLOFT [Concomitant]
     Active Substance: SERTRALINE HYDROCHLORIDE
  2. OSELTAMIVIR PHOSPHAFE CAPS (TAMAFLU) [Suspect]
     Active Substance: OSELTAMIVIR PHOSPHATE
     Indication: INFLUENZA
     Dosage: ?          QUANTITY:10 CAPSULE(S);?
     Route: 048
     Dates: start: 20190206, end: 20190208
  3. ATIVAN [Concomitant]
     Active Substance: LORAZEPAM
  4. AMBIEN [Concomitant]
     Active Substance: ZOLPIDEM TARTRATE
  5. ESTROGEN COMPOUND [Concomitant]
  6. RETIN-A [Concomitant]
     Active Substance: TRETINOIN
  7. CARAFATE [Concomitant]
     Active Substance: SUCRALFATE
  8. PREVACID [Concomitant]
     Active Substance: LANSOPRAZOLE

REACTIONS (9)
  - Neurological symptom [None]
  - Swollen tongue [None]
  - Visual impairment [None]
  - Stress [None]
  - Anxiety [None]
  - Seizure [None]
  - Formication [None]
  - Product complaint [None]
  - Fear [None]

NARRATIVE: CASE EVENT DATE: 20190208
